FAERS Safety Report 5481942-5 (Version None)
Quarter: 2007Q4

REPORT INFORMATION
  Report Type: 
  Country: None (occurrence: None)
  Receive Date: 20071010
  Receipt Date: 20071009
  Transmission Date: 20080405
  Serious: Yes (Other)
  Sender: FDA-Public Use
  Company Number: US-MERCK-0710USA02162

PATIENT

DRUGS (2)
  1. SINGULAIR [Suspect]
     Route: 048
  2. CLARITIN [Suspect]
     Route: 048

REACTIONS (1)
  - PHARYNGEAL OEDEMA [None]
